FAERS Safety Report 10503995 (Version 2)
Quarter: 2014Q4

REPORT INFORMATION
  Report Type: Spontaneous
  Country: US (occurrence: US)
  Receive Date: 20141008
  Receipt Date: 20141008
  Transmission Date: 20150528
  Serious: No
  Sender: FDA-Public Use
  Company Number: US-BEH-2013035951

PATIENT
  Age: 47 Year
  Sex: Male
  Weight: 94 kg

DRUGS (17)
  1. TRAMADOL [Concomitant]
     Active Substance: TRAMADOL
  2. LISINOPRIL. [Concomitant]
     Active Substance: LISINOPRIL
  3. DEXTROSE 5% [Concomitant]
     Active Substance: DEXTROSE
  4. SODIUM CHLORIDE. [Concomitant]
     Active Substance: SODIUM CHLORIDE
  5. PRIVIGEN [Suspect]
     Active Substance: HUMAN IMMUNOGLOBULIN G
     Dosage: 10 GM VIAL; OVER 3-4 HOURS
     Route: 042
  6. LEVOTHYROXINE [Concomitant]
     Active Substance: LEVOTHYROXINE
  7. VERAPAMIL [Concomitant]
     Active Substance: VERAPAMIL HYDROCHLORIDE
  8. METOPROLOL [Concomitant]
     Active Substance: METOPROLOL
  9. VITAMIN B12 [Concomitant]
     Active Substance: CYANOCOBALAMIN
  10. POTASSIUM GLUCONATE [Concomitant]
     Active Substance: POTASSIUM GLUCONATE
  11. GEMFIBROZIL. [Concomitant]
     Active Substance: GEMFIBROZIL
  12. HYDROCHLOROTHIAZIDE. [Concomitant]
     Active Substance: HYDROCHLOROTHIAZIDE
  13. FOLIC ACID. [Concomitant]
     Active Substance: FOLIC ACID
  14. EPIPEN [Concomitant]
     Active Substance: EPINEPHRINE
  15. PRIVIGEN [Suspect]
     Active Substance: HUMAN IMMUNOGLOBULIN G
     Indication: SENSORY NEUROPATHY HEREDITARY
     Dosage: 3-4 HOURS
     Route: 042
  16. DIPHENHYDRAMINE [Concomitant]
     Active Substance: DIPHENHYDRAMINE
  17. MULTIVITAMIN [Concomitant]
     Active Substance: VITAMINS

REACTIONS (3)
  - Drug dose omission [Unknown]
  - Influenza [Unknown]
  - Burning sensation [Unknown]

NARRATIVE: CASE EVENT DATE: 20130406
